FAERS Safety Report 13880956 (Version 1)
Quarter: 2017Q3

REPORT INFORMATION
  Report Type: Spontaneous
  Country: US (occurrence: US)
  Receive Date: 20170818
  Receipt Date: 20170818
  Transmission Date: 20171127
  Serious: No
  Sender: FDA-Public Use
  Company Number: GXBR2017US001311

PATIENT
  Age: 73 Year
  Sex: Female
  Weight: 86.18 kg

DRUGS (3)
  1. NADOLOL. [Suspect]
     Active Substance: NADOLOL
     Indication: HYPERTENSION
     Dosage: 20 MG, BID
     Route: 048
     Dates: start: 20170322
  2. NADOLOL. [Suspect]
     Active Substance: NADOLOL
     Dosage: 10 MG, BID
     Route: 048
  3. NADOLOL. [Suspect]
     Active Substance: NADOLOL
     Dosage: 20 MG, UNK
     Route: 048

REACTIONS (3)
  - Headache [Unknown]
  - Product physical issue [Unknown]
  - Headache [Recovered/Resolved]

NARRATIVE: CASE EVENT DATE: 20170322
